FAERS Safety Report 25932957 (Version 1)
Quarter: 2025Q4

REPORT INFORMATION
  Report Type: Spontaneous
  Country: US (occurrence: US)
  Receive Date: 20251017
  Receipt Date: 20251017
  Transmission Date: 20260118
  Serious: Yes (Life-Threatening, Hospitalization)
  Sender: ACCORD
  Company Number: US-MLMSERVICE-20250926-PI657211-00140-1

PATIENT
  Age: 54 Year
  Sex: Male

DRUGS (6)
  1. CARBOPLATIN [Suspect]
     Active Substance: CARBOPLATIN
     Indication: Pancreatic carcinoma
     Dosage: 17 CYCLES
  2. ETOPOSIDE [Suspect]
     Active Substance: ETOPOSIDE
     Indication: Pancreatic carcinoma
     Dosage: 17 CYCLES
  3. ETOPOSIDE [Suspect]
     Active Substance: ETOPOSIDE
     Indication: Neuroendocrine carcinoma
     Dosage: 17 CYCLES
  4. ETOPOSIDE [Suspect]
     Active Substance: ETOPOSIDE
     Indication: Metastases to liver
     Dosage: 17 CYCLES
  5. CARBOPLATIN [Suspect]
     Active Substance: CARBOPLATIN
     Indication: Neuroendocrine carcinoma
     Dosage: 17 CYCLES
  6. CARBOPLATIN [Suspect]
     Active Substance: CARBOPLATIN
     Indication: Metastases to liver
     Dosage: 17 CYCLES

REACTIONS (2)
  - Acute myeloid leukaemia [Unknown]
  - Off label use [Unknown]
